FAERS Safety Report 4906163-3 (Version None)
Quarter: 2006Q1

REPORT INFORMATION
  Report Type: 
  Country: None (occurrence: None)
  Receive Date: 20060209
  Receipt Date: 20060127
  Transmission Date: 20060701
  Serious: Yes (Other)
  Sender: FDA-Public Use
  Company Number: PHNU2006DE00679

PATIENT
  Sex: Male

DRUGS (1)
  1. FORADIL [Suspect]
     Indication: EMPHYSEMA
     Dosage: ABOUT 4X NORMAL AMOUNT
     Dates: start: 20060122, end: 20060122

REACTIONS (12)
  - BLOOD PRESSURE INCREASED [None]
  - CHILLS [None]
  - DYSPNOEA [None]
  - ERYTHEMA [None]
  - FEELING HOT [None]
  - HEART RATE INCREASED [None]
  - HEART RATE IRREGULAR [None]
  - INCORRECT ROUTE OF DRUG ADMINISTRATION [None]
  - OVERDOSE [None]
  - PERIPHERAL VASCULAR DISORDER [None]
  - RESTLESSNESS [None]
  - TREMOR [None]
